FAERS Safety Report 7936878-4 (Version None)
Quarter: 2011Q4

REPORT INFORMATION
  Report Type: 
  Country: None (occurrence: None)
  Receive Date: 20111123
  Receipt Date: 20111123
  Transmission Date: 20120403
  Serious: Yes (Life-Threatening)
  Sender: FDA-Public Use
  Company Number: None

PATIENT
  Sex: Female
  Weight: 56.699 kg

DRUGS (1)
  1. CHANTIX [Suspect]
     Indication: SMOKING CESSATION THERAPY
     Dosage: STANDARD
     Dates: start: 20110930, end: 20111102

REACTIONS (5)
  - DRUG INTERACTION [None]
  - AMNESIA [None]
  - LOSS OF CONSCIOUSNESS [None]
  - FEELING DRUNK [None]
  - DISORIENTATION [None]
